FAERS Safety Report 7074953-X (Version None)
Quarter: 2010Q4

REPORT INFORMATION
  Report Type: 
  Country: None (occurrence: None)
  Receive Date: 20101029
  Receipt Date: 20101012
  Transmission Date: 20110411
  Serious: Yes (Hospitalization, Other)
  Sender: FDA-Public Use
  Company Number: US-AMGEN LTD.-QUU445284

PATIENT

DRUGS (27)
  1. NPLATE [Suspect]
     Indication: THROMBOCYTOPENIA
     Dosage: UNK UNK, UNK
     Dates: start: 20091101, end: 20091101
  2. ASCORBIC ACID [Concomitant]
     Dosage: 500 MG, QD
     Route: 048
  3. ZYRTEC [Concomitant]
     Dosage: 10 MG, QD
     Route: 048
  4. PLACEBO [Concomitant]
     Dosage: 40 MG, QWK
     Route: 048
  5. DEXTROSE [Concomitant]
     Dosage: 3 ML, QWK
     Route: 042
  6. NEXIUM [Concomitant]
     Dosage: 40 MG, QD
     Route: 048
  7. PROVERA [Concomitant]
     Dosage: 10 MG, QD
     Route: 048
  8. MULTIVITAMIN                       /00097801/ [Concomitant]
     Dosage: 1 DF, QD
  9. PREDNISONE [Concomitant]
     Dosage: 20 MG, BID
     Route: 048
  10. BACTRIM [Concomitant]
     Dosage: 1 DF, 2 TIMES/WK
     Route: 048
  11. TACROLIMUS [Concomitant]
     Dosage: 2 MG, BID
     Route: 048
  12. DESYREL [Concomitant]
     Dosage: 100 MG, QD
     Route: 048
  13. VALTREX [Concomitant]
     Dosage: 500 MG, UNK
  14. TYLENOL (CAPLET) [Concomitant]
     Dosage: 650 MG, PRN
     Route: 048
  15. DILAUDID [Concomitant]
     Dosage: 2 MG, PRN
     Route: 048
  16. ARA-C [Concomitant]
  17. DECITABINE [Concomitant]
  18. ERGOCALCIFEROL [Concomitant]
     Dosage: 50000 UNIT, QWK
  19. HYDROXYZINE [Concomitant]
  20. MAGIC  MOUTHWASH [Concomitant]
  21. MEDROXYPROGESTERONE [Concomitant]
     Dosage: 10 MG, QD
  22. METOPROLOL [Concomitant]
     Dosage: 50 MG, UNK
  23. PRAVASTATIN [Concomitant]
     Dosage: 40 MG, UNK
  24. PREDNISONE [Concomitant]
     Dosage: 5 MG, QD
  25. TRAZODONE [Concomitant]
     Dosage: 100 MG, QD
  26. VALTREX [Suspect]
     Dosage: 500 MG, QD
  27. VITAMIN C                          /00008001/ [Suspect]

REACTIONS (25)
  - ALANINE AMINOTRANSFERASE INCREASED [None]
  - ANXIETY [None]
  - ASPARTATE AMINOTRANSFERASE INCREASED [None]
  - BLOOD CULTURE POSITIVE [None]
  - BONE MARROW TRANSPLANT [None]
  - CEREBRAL HAEMORRHAGE [None]
  - DERMATITIS [None]
  - DIARRHOEA [None]
  - DRUG ERUPTION [None]
  - EYE HAEMORRHAGE [None]
  - FATIGUE [None]
  - GASTROOESOPHAGEAL REFLUX DISEASE [None]
  - HEADACHE [None]
  - MAJOR DEPRESSION [None]
  - NAUSEA [None]
  - OXYGEN SATURATION DECREASED [None]
  - PAIN [None]
  - PLATELET COUNT DECREASED [None]
  - PULMONARY SEQUESTRATION [None]
  - PYREXIA [None]
  - SPLENOMEGALY [None]
  - STAPHYLOCOCCAL INFECTION [None]
  - THROMBOSIS [None]
  - VISUAL IMPAIRMENT [None]
  - VOMITING [None]
